FAERS Safety Report 4441551-3 (Version None)
Quarter: 2004Q3

REPORT INFORMATION
  Report Type: 
  Country: None (occurrence: None)
  Receive Date: 20040728
  Receipt Date: 20040506
  Transmission Date: 20050211
  Serious: No
  Sender: FDA-Public Use
  Company Number: USA040566874

PATIENT
  Age: 9 Year
  Sex: Female
  Weight: 44 kg

DRUGS (2)
  1. STRATTERA [Suspect]
     Indication: ATTENTION DEFICIT/HYPERACTIVITY DISORDER
     Dosage: 25 MG DAY
     Dates: start: 20040424
  2. ADDERALL 20 [Concomitant]

REACTIONS (5)
  - EAR PAIN [None]
  - EYE ALLERGY [None]
  - FATIGUE [None]
  - PHARYNGOLARYNGEAL PAIN [None]
  - RHINITIS ALLERGIC [None]
